FAERS Safety Report 18358438 (Version 1)
Quarter: 2020Q4

REPORT INFORMATION
  Report Type: Spontaneous
  Country: US (occurrence: US)
  Receive Date: 20201008
  Receipt Date: 20201008
  Transmission Date: 20210114
  Serious: No
  Sender: FDA-Public Use
  Company Number: US-SA-2020SA275821

PATIENT

DRUGS (1)
  1. DUPIXENT [Suspect]
     Active Substance: DUPILUMAB
     Indication: DERMATITIS ATOPIC
     Dosage: 600 MG, 1X
     Route: 058
     Dates: start: 20201002, end: 20201002

REACTIONS (6)
  - Skin exfoliation [Unknown]
  - Skin fissures [Unknown]
  - Skin weeping [Unknown]
  - Pruritus [Unknown]
  - Sleep disorder [Unknown]
  - Dry skin [Unknown]

NARRATIVE: CASE EVENT DATE: 202010
